FAERS Safety Report 5384212-9 (Version None)
Quarter: 2007Q3

REPORT INFORMATION
  Report Type: 
  Country: None (occurrence: None)
  Receive Date: 20070711
  Receipt Date: 20070710
  Transmission Date: 20080115
  Serious: Yes (Hospitalization)
  Sender: FDA-Public Use
  Company Number: B0478428A

PATIENT
  Age: 68 Year
  Sex: Female

DRUGS (7)
  1. SERETIDE [Suspect]
     Indication: DRUG USE FOR UNKNOWN INDICATION
     Dosage: 1U TWICE PER DAY
     Route: 055
     Dates: start: 20050612
  2. SPIROPENT [Concomitant]
     Route: 048
  3. ZADITEN [Concomitant]
     Route: 065
  4. THEOLONG [Concomitant]
     Route: 048
  5. GASTER D [Concomitant]
     Route: 048
  6. MEVALOTIN [Concomitant]
     Route: 048
  7. ANTOBRON [Concomitant]
     Route: 048

REACTIONS (1)
  - ANAPHYLACTIC SHOCK [None]
